FAERS Safety Report 20963862 (Version 4)
Quarter: 2022Q4

REPORT INFORMATION
  Report Type: Spontaneous
  Country: PT (occurrence: PT)
  Receive Date: 20220615
  Receipt Date: 20221123
  Transmission Date: 20230113
  Serious: No
  Sender: FDA-Public Use
  Company Number: PT-BAXTER-2022BAX010843

PATIENT
  Age: 21 Year
  Sex: Female

DRUGS (11)
  1. ONDANSETRON [Suspect]
     Active Substance: ONDANSETRON
     Indication: Haematemesis
     Dosage: UNK
     Route: 065
  2. PANTOPRAZOLE [Suspect]
     Active Substance: PANTOPRAZOLE
     Indication: Haematemesis
     Dosage: UNK
     Route: 065
  3. METAMIZOLE MAGNESIUM [Interacting]
     Active Substance: METAMIZOLE MAGNESIUM
     Indication: Abdominal pain upper
     Dosage: EXCEEDED THE RECOMMENDED DOSE
     Route: 048
  4. METAMIZOLE MAGNESIUM [Interacting]
     Active Substance: METAMIZOLE MAGNESIUM
     Indication: Vomiting
  5. METAMIZOLE MAGNESIUM [Interacting]
     Active Substance: METAMIZOLE MAGNESIUM
     Indication: Pyrexia
  6. DESLORATADINE [Concomitant]
     Active Substance: DESLORATADINE
     Indication: Abdominal pain upper
     Dosage: EXCEEDED THE RECOMMENDED DOSE
     Route: 048
  7. DESLORATADINE [Concomitant]
     Active Substance: DESLORATADINE
     Indication: Vomiting
  8. DESLORATADINE [Concomitant]
     Active Substance: DESLORATADINE
     Indication: Pyrexia
  9. IBUPROFEN [Concomitant]
     Active Substance: IBUPROFEN
     Indication: Abdominal pain upper
     Dosage: HIGH DOSE
     Route: 048
  10. IBUPROFEN [Concomitant]
     Active Substance: IBUPROFEN
     Indication: Pyrexia
  11. IBUPROFEN [Concomitant]
     Active Substance: IBUPROFEN
     Indication: Vomiting

REACTIONS (1)
  - No adverse event [Recovered/Resolved]
